FAERS Safety Report 7851153-4 (Version None)
Quarter: 2011Q4

REPORT INFORMATION
  Report Type: 
  Country: None (occurrence: None)
  Receive Date: 20111026
  Receipt Date: 20111020
  Transmission Date: 20120403
  Serious: Yes (Hospitalization, Other)
  Sender: FDA-Public Use
  Company Number: US-B.I. PHARMACEUTICALS,INC./RIDGEFIELD-2011-BP-15376BP

PATIENT
  Age: 82 Year
  Sex: Female

DRUGS (18)
  1. POTASSIUM [Concomitant]
     Indication: MINERAL SUPPLEMENTATION
     Route: 048
  2. OMEPRAZOLE [Concomitant]
     Indication: GASTROOESOPHAGEAL REFLUX DISEASE
     Dosage: 20 MG
     Route: 048
  3. ASCORBIC ACID [Concomitant]
     Indication: MINERAL SUPPLEMENTATION
     Dosage: 500 MG
     Route: 048
  4. PRADAXA [Suspect]
     Indication: ATRIAL FIBRILLATION
     Dosage: 300 MG
     Route: 048
     Dates: start: 20110501
  5. XALATAN [Concomitant]
     Indication: GLAUCOMA
  6. TRIAMTERENE [Concomitant]
     Indication: CARDIAC DISORDER
     Route: 048
  7. COUMADIN [Concomitant]
  8. LOTEMAX [Concomitant]
     Indication: GLAUCOMA
  9. LYRICA [Concomitant]
     Indication: RAYNAUD'S PHENOMENON
     Dosage: 50 MG
  10. FOLIC ACID [Concomitant]
     Indication: MINERAL SUPPLEMENTATION
     Dosage: 400 MG
     Route: 048
  11. CALCIUM CARBONATE [Concomitant]
     Indication: MINERAL SUPPLEMENTATION
     Dosage: 1000 MG
     Route: 048
  12. PANTOPRAZOLE [Concomitant]
  13. CARAFATE [Concomitant]
  14. POTASSIUM CHLORIDE (KLOR-CON) [Concomitant]
  15. INDERAL [Concomitant]
     Indication: RAYNAUD'S PHENOMENON
     Dosage: 20 MG
     Route: 048
  16. LASIX [Concomitant]
     Indication: CARDIAC DISORDER
     Dosage: 20 MG
  17. VITAMIN D [Concomitant]
     Indication: MINERAL SUPPLEMENTATION
     Dosage: 2857.1429 U
     Route: 048
  18. ZANTAC [Concomitant]

REACTIONS (6)
  - CHEST PAIN [None]
  - BACK PAIN [None]
  - GASTRIC ULCER [None]
  - INTRACARDIAC THROMBUS [None]
  - DYSPEPSIA [None]
  - NAUSEA [None]
